FAERS Safety Report 9747707 (Version 1)
Quarter: 2013Q4

REPORT INFORMATION
  Report Type: Spontaneous
  Country: US (occurrence: None)
  Receive Date: 20131211
  Receipt Date: 20131211
  Transmission Date: 20140711
  Serious: Yes (Hospitalization, Other)
  Sender: FDA-Public Use
  Company Number: None

PATIENT
  Age: 41 Year
  Sex: Male
  Weight: 111.13 kg

DRUGS (1)
  1. TESTOSTERONE CYPIONATE [Suspect]
     Indication: BLOOD TESTOSTERONE DECREASED
     Dosage: INTO THE MUSCLE

REACTIONS (8)
  - Vertigo [None]
  - Ear infection [None]
  - Cerebrovascular accident [None]
  - Impaired work ability [None]
  - Cerebrovascular disorder [None]
  - Dehydration [None]
  - Fatigue [None]
  - Unevaluable event [None]
